FAERS Safety Report 8068816-0 (Version None)
Quarter: 2012Q1

REPORT INFORMATION
  Report Type: 
  Country: None (occurrence: None)
  Receive Date: 20120125
  Receipt Date: 20120120
  Transmission Date: 20120608
  Serious: Yes (Death, Hospitalization, Other)
  Sender: FDA-Public Use
  Company Number: US-BRISTOL-MYERS SQUIBB COMPANY-15218894

PATIENT
  Age: 69 Year
  Sex: Male

DRUGS (14)
  1. BENAZEPRIL HYDROCHLORIDE [Concomitant]
  2. ASACOL [Concomitant]
     Dates: start: 20100807
  3. SODIUM PHOSPHATES [Concomitant]
  4. PROTONIX [Concomitant]
     Dates: start: 20100807
  5. MEGACE [Concomitant]
  6. KEPPRA [Concomitant]
     Dates: start: 20100412
  7. IPILIMUMAB [Suspect]
     Indication: MALIGNANT MELANOMA
     Dosage: 253.5MG
     Route: 042
     Dates: start: 20100701, end: 20100722
  8. SEROQUEL [Concomitant]
     Dates: start: 20100807
  9. AMLODIPINE [Concomitant]
  10. NEXIUM [Concomitant]
  11. PROVIGIL [Concomitant]
     Dates: start: 20100722
  12. REMERON [Concomitant]
     Dates: start: 20100722
  13. DECADRON [Concomitant]
     Dates: start: 20100807
  14. VANCOMYCIN [Concomitant]

REACTIONS (9)
  - NEOPLASM MALIGNANT [None]
  - DIARRHOEA [None]
  - SEPSIS [None]
  - BACTERAEMIA [None]
  - INFECTION [None]
  - COLITIS [None]
  - MENTAL STATUS CHANGES [None]
  - DEHYDRATION [None]
  - LEUKOCYTOSIS [None]
